FAERS Safety Report 5884317-X (Version None)
Quarter: 2008Q3

REPORT INFORMATION
  Report Type: 
  Country: None (occurrence: None)
  Receive Date: 20080915
  Receipt Date: 20080911
  Transmission Date: 20090109
  Serious: Yes (Death, Hospitalization)
  Sender: FDA-Public Use
  Company Number: US-B.I. PHARMACEUTICALS,INC./RIDGEFIELD-2008-BP-10872BP

PATIENT
  Age: 74 Year
  Sex: Male

DRUGS (12)
  1. MICARDIS [Suspect]
     Indication: HYPERTENSION
     Dosage: 20MG
  2. MICARDIS [Suspect]
     Indication: CARDIAC FAILURE CONGESTIVE
  3. LANTUS [Concomitant]
     Indication: TYPE 1 DIABETES MELLITUS
     Dosage: 10U
  4. DIGOXIN [Concomitant]
     Indication: CARDIAC FAILURE CONGESTIVE
     Dosage: .125MG
  5. COUMADIN [Concomitant]
     Indication: TRANSIENT ISCHAEMIC ATTACK
     Dosage: 6MG
  6. COUMADIN [Concomitant]
     Indication: CAROTID ARTERY STENOSIS
  7. OTHER MEDICATIONS [Concomitant]
  8. LASIX [Concomitant]
     Dosage: 20MG
  9. BYETTA [Concomitant]
     Dosage: 5 UNIT BID
  10. ZOCOR [Concomitant]
     Dosage: 20MG
  11. ALLOPURINOL [Concomitant]
     Dosage: 100MG
  12. DUONEB [Concomitant]

REACTIONS (2)
  - CEREBROVASCULAR ACCIDENT [None]
  - HEMIPARESIS [None]
